FAERS Safety Report 18741670 (Version 1)
Quarter: 2021Q1

REPORT INFORMATION
  Report Type: Spontaneous
  Country: JP (occurrence: JP)
  Receive Date: 20210114
  Receipt Date: 20210114
  Transmission Date: 20210419
  Serious: Yes (Other)
  Sender: FDA-Public Use
  Company Number: JP-VIIV HEALTHCARE LIMITED-JP2021JPN006150

PATIENT
  Age: 54 Year
  Sex: Male

DRUGS (9)
  1. CARBOPLATIN. [Suspect]
     Active Substance: CARBOPLATIN
     Dosage: UNK
  2. PEMETREXED SODIUM HYDRATE [Suspect]
     Active Substance: PEMETREXED
     Dosage: UNK
  3. TIVICAY [Suspect]
     Active Substance: DOLUTEGRAVIR SODIUM
     Indication: HIV INFECTION
     Dosage: UNK
     Route: 048
  4. DOCETAXEL. [Suspect]
     Active Substance: DOCETAXEL
     Dosage: UNK
  5. RAMUCIRUMAB (GENETICAL RECOMBINATION) [Suspect]
     Active Substance: RAMUCIRUMAB
     Dosage: UNK
  6. PEMBROLIZUMAB (GENETICAL RECOMBINATION) [Suspect]
     Active Substance: PEMBROLIZUMAB
     Dosage: UNK
  7. EPZICOM [Suspect]
     Active Substance: ABACAVIR SULFATE\LAMIVUDINE
     Indication: HIV INFECTION
     Dosage: UNK
     Route: 048
  8. BEVACIZUMAB. [Suspect]
     Active Substance: BEVACIZUMAB
     Dosage: UNK
  9. TS?1 [Suspect]
     Active Substance: GIMERACIL\OTERACIL\TEGAFUR
     Dosage: UNK

REACTIONS (9)
  - Lung neoplasm malignant [Unknown]
  - Lung carcinoma cell type unspecified recurrent [Unknown]
  - Metastases to central nervous system [Unknown]
  - Platelet count decreased [Unknown]
  - Metastases to lung [Unknown]
  - Acute myeloid leukaemia [Unknown]
  - Carcinoembryonic antigen increased [Unknown]
  - Renal impairment [Unknown]
  - Lymphadenopathy [Unknown]
